FAERS Safety Report 9635116 (Version 1)
Quarter: 2013Q4

REPORT INFORMATION
  Report Type: Spontaneous
  Country: GB (occurrence: None)
  Receive Date: 20131017
  Receipt Date: 20131017
  Transmission Date: 20140711
  Serious: Yes (Other)
  Sender: FDA-Public Use
  Company Number: FK201304571

PATIENT
  Age: 71 Year
  Sex: Male

DRUGS (21)
  1. VANCOMYCIN [Suspect]
     Indication: ENDOCARDITIS BACTERIAL
     Route: 042
     Dates: start: 20130810, end: 20130810
  2. MEROPENEM [Suspect]
     Indication: ENDOCARDITIS BACTERIAL
     Dosage: 1 IN 8 HR (NOT OTHERWISE SPECIFIED)
     Route: 042
     Dates: start: 20130814, end: 20130901
  3. AMLODIPINE [Concomitant]
  4. BENZYDAMINE HYDROCHLORIDE [Concomitant]
  5. CARBOCISTEINE [Concomitant]
  6. CASPOFUNGIN [Concomitant]
  7. CHLORPHENAMINE MALEATE [Concomitant]
  8. DEXAMETHASONE [Concomitant]
  9. ENOXAPARIN [Concomitant]
  10. FERROUS FUMARATE [Concomitant]
  11. GENTAMICIN [Concomitant]
  12. GYCOPYRROLATE [Concomitant]
  13. HYOSCINE [Concomitant]
  14. METRONIDAZOLE [Concomitant]
  15. NORMAL SALINE [Concomitant]
  16. PABRINEX [Concomitant]
  17. PARACETAMOL [Concomitant]
  18. PHOSPHATE-SANDOZ [Concomitant]
  19. PIPERACILLIN AND TAZOBACTAM [Concomitant]
  20. SALBUTAMOL [Concomitant]
  21. VORICONAZOLE [Concomitant]

REACTIONS (9)
  - Rash [None]
  - Erythema [None]
  - Rash maculo-papular [None]
  - Petechiae [None]
  - Erythema multiforme [None]
  - Tremor [None]
  - Stevens-Johnson syndrome [None]
  - Dry mouth [None]
  - Rash [None]
